FAERS Safety Report 6441827-4 (Version None)
Quarter: 2009Q4

REPORT INFORMATION
  Report Type: 
  Country: None (occurrence: None)
  Receive Date: 20091116
  Receipt Date: 20091110
  Transmission Date: 20100525
  Serious: Yes (Hospitalization)
  Sender: FDA-Public Use
  Company Number: US-GILEAD-2009-0025200

PATIENT
  Sex: Female

DRUGS (9)
  1. LETAIRIS [Suspect]
     Indication: PULMONARY ARTERIAL HYPERTENSION
     Route: 048
     Dates: start: 20080314
  2. REVATIO [Concomitant]
  3. LASIX [Concomitant]
  4. PREDNISONE [Concomitant]
  5. FENTANYL-100 [Concomitant]
  6. SYNTHROID [Concomitant]
  7. POTASSIUM CHLORIDE [Concomitant]
  8. HUMALOG [Concomitant]
  9. NOVOLIN [Concomitant]

REACTIONS (1)
  - PNEUMONIA [None]
